FAERS Safety Report 15149574 (Version 2)
Quarter: 2019Q2

REPORT INFORMATION
  Report Type: Spontaneous
  Country: US (occurrence: US)
  Receive Date: 20180716
  Receipt Date: 20190401
  Transmission Date: 20190711
  Serious: No
  Sender: FDA-Public Use
  Company Number: US-VANDA PHARMACEUTICALS, INC-2018TASUS002010

PATIENT
  Age: 57 Year
  Sex: Female

DRUGS (1)
  1. HETLIOZ [Suspect]
     Active Substance: TASIMELTEON
     Indication: SLEEP DISORDER
     Dosage: 20 MG, EVERY 24 HOURS BEFORE BED
     Route: 048
     Dates: start: 201711

REACTIONS (4)
  - Migraine [Unknown]
  - Bronchitis [Unknown]
  - Urinary tract infection [Unknown]
  - Abnormal dreams [Unknown]
